FAERS Safety Report 12595571 (Version 1)
Quarter: 2016Q3

REPORT INFORMATION
  Report Type: Spontaneous
  Country: US (occurrence: US)
  Receive Date: 20160726
  Receipt Date: 20160726
  Transmission Date: 20161109
  Serious: No
  Sender: FDA-Public Use
  Company Number: US-ENDO PHARMACEUTICALS INC.-2016-001785

PATIENT
  Age: 43 Year
  Sex: Male
  Weight: 122.58 kg

DRUGS (11)
  1. LISINOPRIL TABLETS 10MG [Suspect]
     Active Substance: LISINOPRIL
     Indication: DIABETES MELLITUS
  2. FENOFIBRATE. [Concomitant]
     Active Substance: FENOFIBRATE
     Indication: BLOOD CHOLESTEROL
     Route: 065
     Dates: start: 2014
  3. BENTYL [Concomitant]
     Active Substance: DICYCLOMINE HYDROCHLORIDE
     Indication: IRRITABLE BOWEL SYNDROME
     Route: 065
     Dates: start: 2014
  4. LISINOPRIL TABLETS 10MG [Suspect]
     Active Substance: LISINOPRIL
     Indication: HYPERTENSION
     Route: 065
     Dates: start: 20141110
  5. VITAMIN C [Concomitant]
     Active Substance: ASCORBIC ACID
     Indication: PRODUCT USED FOR UNKNOWN INDICATION
     Route: 065
     Dates: start: 2008
  6. ISORBIDE [Concomitant]
     Active Substance: ISOSORBIDE
     Indication: PRODUCT USED FOR UNKNOWN INDICATION
     Route: 065
     Dates: start: 2015
  7. VITAMIN D [Concomitant]
     Active Substance: CHOLECALCIFEROL
     Indication: DEPRESSION
     Route: 065
     Dates: start: 2008
  8. BAYER ASPIRIN [Concomitant]
     Active Substance: ASPIRIN
     Indication: BLOOD PRESSURE MEASUREMENT
     Route: 065
     Dates: start: 201509
  9. OMEPRAZOLE. [Concomitant]
     Active Substance: OMEPRAZOLE
     Indication: GASTROOESOPHAGEAL REFLUX DISEASE
     Route: 065
     Dates: start: 2014
  10. FISH OIL [Concomitant]
     Active Substance: FISH OIL
     Indication: PRODUCT USED FOR UNKNOWN INDICATION
     Route: 065
     Dates: start: 2012
  11. PRISTIQ EXTENDED-RELEASE [Concomitant]
     Active Substance: DESVENLAFAXINE SUCCINATE
     Indication: DEPRESSION
     Route: 048
     Dates: start: 2008

REACTIONS (2)
  - Blood pressure increased [Unknown]
  - Off label use [Not Recovered/Not Resolved]

NARRATIVE: CASE EVENT DATE: 20141110
